FAERS Safety Report 23843516 (Version 1)
Quarter: 2024Q2

REPORT INFORMATION
  Report Type: Spontaneous
  Country: US (occurrence: US)
  Receive Date: 20240510
  Receipt Date: 20240510
  Transmission Date: 20240716
  Serious: Yes (Other)
  Sender: FDA-Public Use
  Company Number: US-ORGANON-O2405USA000776

PATIENT

DRUGS (1)
  1. NEXPLANON [Suspect]
     Active Substance: ETONOGESTREL
     Dosage: 1 IMPLANT (68MG EVERY 3 YEARS)
     Route: 059

REACTIONS (2)
  - Device dislocation [Not Recovered/Not Resolved]
  - No adverse event [Unknown]
